FAERS Safety Report 5041984-0 (Version None)
Quarter: 2006Q2

REPORT INFORMATION
  Report Type: 
  Country: None (occurrence: None)
  Receive Date: 20060630
  Receipt Date: 20060614
  Transmission Date: 20061013
  Serious: Yes (Hospitalization)
  Sender: FDA-Public Use
  Company Number: DSA_28353_2006

PATIENT
  Age: 78 Year
  Sex: Female

DRUGS (5)
  1. ENALAPRIL MALEATE W/ HYDROCHLOROTHIAZIDE [Suspect]
     Indication: HYPERTENSION
     Dosage: VAR QD PO
     Route: 048
     Dates: end: 20060504
  2. FUROSEMIDE [Suspect]
     Indication: HYPERTENSION
     Dosage: 40 MG Q DAY PO
     Route: 048
     Dates: end: 20060504
  3. AMIODARONE HCL [Concomitant]
  4. CELIPROLOL [Concomitant]
  5. FLUINDIONE [Concomitant]

REACTIONS (9)
  - BLOOD PRESSURE INCREASED [None]
  - BRADYCARDIA [None]
  - DRUG INTERACTION [None]
  - ELECTROCARDIOGRAM ABNORMAL [None]
  - ELECTROCARDIOGRAM QT PROLONGED [None]
  - ELECTROCARDIOGRAM REPOLARISATION ABNORMALITY [None]
  - ELECTROCARDIOGRAM T WAVE BIPHASIC [None]
  - HYPOKALAEMIA [None]
  - MALAISE [None]
